FAERS Safety Report 8988760 (Version 1)
Quarter: 2012Q4

REPORT INFORMATION
  Report Type: Spontaneous
  Country: US (occurrence: None)
  Receive Date: 20121224
  Receipt Date: 20121224
  Transmission Date: 20130627
  Serious: Yes (Life-Threatening)
  Sender: FDA-Public Use
  Company Number: None

PATIENT
  Age: 36 Year
  Sex: Female
  Weight: 75 kg

DRUGS (1)
  1. POLYMYXIN B [Suspect]
     Indication: PNEUMONIA BACTERIAL
     Route: 042
     Dates: start: 20121218, end: 20121218

REACTIONS (2)
  - Hypotension [None]
  - Urine output decreased [None]
